FAERS Safety Report 9371707 (Version 4)
Quarter: 2014Q2

REPORT INFORMATION
  Report Type: Spontaneous
  Country: US (occurrence: US)
  Receive Date: 20130627
  Receipt Date: 20140501
  Transmission Date: 20141212
  Serious: No
  Sender: FDA-Public Use
  Company Number: US-PFIZER INC-2013188619

PATIENT
  Age: 71 Year
  Sex: Female
  Weight: 57.14 kg

DRUGS (4)
  1. SUTENT [Suspect]
     Indication: GASTROINTESTINAL CARCINOMA
     Dosage: 37.5 MG, 1X/DAY (25MG AND 12.5 MG)
     Route: 048
     Dates: start: 20130509
  2. SUTENT [Suspect]
     Dosage: 25 MG, 1X/DAY
     Route: 048
     Dates: start: 20130510
  3. SUTENT [Suspect]
     Dosage: 25 MG, DAILY
     Route: 048
     Dates: start: 20130622
  4. SUTENT [Suspect]
     Dosage: 25 MG, DAILY
     Route: 048
     Dates: start: 20130725, end: 20140416

REACTIONS (4)
  - Skin infection [Unknown]
  - Stomatitis [Unknown]
  - Decreased appetite [Unknown]
  - Nausea [Unknown]
